FAERS Safety Report 18505297 (Version 2)
Quarter: 2020Q4

REPORT INFORMATION
  Report Type: Spontaneous
  Country: US (occurrence: US)
  Receive Date: 20201116
  Receipt Date: 20201123
  Transmission Date: 20210114
  Serious: Yes (Death, Hospitalization, Other)
  Sender: FDA-Public Use
  Company Number: US-DRREDDYS-USA/USA/20/0128968

PATIENT
  Sex: Male

DRUGS (2)
  1. HEPARIN SODIUM. [Suspect]
     Active Substance: HEPARIN SODIUM
     Indication: PRODUCT USED FOR UNKNOWN INDICATION
  2. BIVALIRUDIN INJECTION [Suspect]
     Active Substance: BIVALIRUDIN
     Indication: ANTICOAGULANT THERAPY

REACTIONS (12)
  - Sepsis [Unknown]
  - Traumatic liver injury [Unknown]
  - Pulseless electrical activity [Unknown]
  - Nosocomial infection [Fatal]
  - Acute kidney injury [Unknown]
  - Pneumothorax [Unknown]
  - Respiratory tract infection [Fatal]
  - Haemoperitoneum [Unknown]
  - Pleural effusion [Unknown]
  - Heparin-induced thrombocytopenia [Unknown]
  - Hypotension [Unknown]
  - Splenic rupture [Unknown]
